FAERS Safety Report 12484911 (Version 4)
Quarter: 2016Q3

REPORT INFORMATION
  Report Type: Spontaneous
  Country: US (occurrence: US)
  Receive Date: 20160621
  Receipt Date: 20160826
  Transmission Date: 20161109
  Serious: Yes (Hospitalization, Other)
  Sender: FDA-Public Use
  Company Number: US-GLAXOSMITHKLINE-US2016088083

PATIENT
  Age: 33 Year
  Sex: Female

DRUGS (1)
  1. LAMISIL AT CONTINUOUS SPRAY [Suspect]
     Active Substance: TERBINAFINE HYDROCHLORIDE
     Indication: TINEA PEDIS
     Dosage: UNK UNK, BID
     Route: 061

REACTIONS (4)
  - Hospitalisation [Recovered/Resolved]
  - Skin burning sensation [Unknown]
  - Drug ineffective [Unknown]
  - Product quality issue [Unknown]
